APPROVED DRUG PRODUCT: ZOLEDRONIC ACID
Active Ingredient: ZOLEDRONIC ACID
Strength: EQ 4MG BASE/5ML
Dosage Form/Route: INJECTABLE;INTRAVENOUS
Application: A208513 | Product #001
Applicant: SHILPA MEDICARE LTD
Approved: May 15, 2019 | RLD: No | RS: No | Type: DISCN